FAERS Safety Report 7620865-X (Version None)
Quarter: 2011Q3

REPORT INFORMATION
  Report Type: 
  Country: None (occurrence: None)
  Receive Date: 20110719
  Receipt Date: 20110711
  Transmission Date: 20111222
  Serious: Yes (Life-Threatening, Hospitalization, Other)
  Sender: FDA-Public Use
  Company Number: JP-ABBOTT-11P-087-0732348-00

PATIENT
  Sex: Male
  Weight: 61.1 kg

DRUGS (14)
  1. SYMBICORT [Suspect]
     Indication: BRONCHITIS CHRONIC
     Route: 055
     Dates: start: 20110418, end: 20110607
  2. MUCOSOLATE [Concomitant]
     Dosage: IN THE EVENING
     Route: 048
     Dates: start: 20110502, end: 20110607
  3. REBAMIPIDE [Concomitant]
     Indication: PRODUCT USED FOR UNKNOWN INDICATION
     Dosage: 200MG DAILY, 100MG 2 IN 1 DAY
     Route: 048
     Dates: start: 20110516
  4. ACETAMINOPHEN [Concomitant]
     Indication: PRODUCT USED FOR UNKNOWN INDICATION
     Route: 048
     Dates: start: 20110516
  5. CLARITHROMYCIN [Suspect]
     Indication: UPPER-AIRWAY COUGH SYNDROME
  6. MUCOSOLATE [Suspect]
     Indication: BRONCHITIS CHRONIC
     Route: 048
     Dates: start: 20110502, end: 20110607
  7. THEOPHYLLINE (UNIPHYL A) [Concomitant]
     Indication: PRODUCT USED FOR UNKNOWN INDICATION
     Dates: end: 20110502
  8. CLARITHROMYCIN [Suspect]
     Indication: BRONCHITIS CHRONIC
     Route: 048
     Dates: start: 20110502, end: 20110607
  9. SINGULAIR [Suspect]
     Indication: BRONCHITIS CHRONIC
     Dosage: BEFORE SLEEP
     Route: 048
     Dates: start: 20110502, end: 20110607
  10. AZUNOL [Concomitant]
     Indication: PRODUCT USED FOR UNKNOWN INDICATION
     Dates: start: 20110516
  11. LEVOFLOXACIN HYDRATE [Concomitant]
     Indication: PRODUCT USED FOR UNKNOWN INDICATION
     Dosage: 400MG DAILY, 200MG 2 IN 1 DAY
     Route: 048
     Dates: start: 20110516
  12. CLARITHROMYCIN [Suspect]
     Indication: SEASONAL ALLERGY
  13. SYMBICORT [Concomitant]
     Route: 055
     Dates: start: 20110418, end: 20110607
  14. LANSOPRAZOLE [Concomitant]
     Indication: PRODUCT USED FOR UNKNOWN INDICATION
     Dosage: IN THE EVENING
     Route: 048
     Dates: start: 20110516

REACTIONS (7)
  - BLOOD CREATINE PHOSPHOKINASE INCREASED [None]
  - MYALGIA [None]
  - COUGH [None]
  - PRODUCTIVE COUGH [None]
  - PYREXIA [None]
  - ASPARTATE AMINOTRANSFERASE INCREASED [None]
  - CHLAMYDIAL INFECTION [None]
